FAERS Safety Report 5464791-3 (Version None)
Quarter: 2007Q3

REPORT INFORMATION
  Report Type: 
  Country: None (occurrence: None)
  Receive Date: 20070921
  Receipt Date: 20070911
  Transmission Date: 20080115
  Serious: Yes (Other)
  Sender: FDA-Public Use
  Company Number: CA-PFIZER INC-2007071326

PATIENT
  Sex: Female

DRUGS (2)
  1. DIFLUCAN [Suspect]
     Indication: VAGINAL CANDIDIASIS
     Route: 048
  2. RIVOTRIL [Concomitant]

REACTIONS (3)
  - APHTHOUS STOMATITIS [None]
  - ERYTHEMA MULTIFORME [None]
  - VAGINAL ERYTHEMA [None]
